FAERS Safety Report 12503087 (Version 2)
Quarter: 2016Q3

REPORT INFORMATION
  Report Type: Spontaneous
  Country: IT (occurrence: IT)
  Receive Date: 20160628
  Receipt Date: 20160719
  Transmission Date: 20161109
  Serious: Yes (Other)
  Sender: FDA-Public Use
  Company Number: IT-ROCHE-1704847

PATIENT
  Age: 59 Year
  Sex: Female

DRUGS (7)
  1. SALAZOPYRIN EN-TABS [Concomitant]
     Active Substance: SULFASALAZINE
     Dosage: 100 X 500 MG
     Route: 065
  2. LANSOX [Concomitant]
     Active Substance: LANSOPRAZOLE
  3. PROCORALAN [Concomitant]
     Active Substance: IVABRADINE
  4. ROACTEMRA [Suspect]
     Active Substance: TOCILIZUMAB
     Route: 042
     Dates: start: 20150101, end: 20160202
  5. ACETYLSALICYLIC ACID [Concomitant]
     Active Substance: ASPIRIN
     Route: 065
  6. DIBASE [Concomitant]
     Active Substance: CHOLECALCIFEROL
  7. ROACTEMRA [Suspect]
     Active Substance: TOCILIZUMAB
     Indication: RHEUMATOID ARTHRITIS
     Route: 042
     Dates: start: 20130201, end: 201304

REACTIONS (3)
  - Chronic lymphocytic leukaemia [Not Recovered/Not Resolved]
  - Neutropenia [Unknown]
  - Neutropenia [Unknown]

NARRATIVE: CASE EVENT DATE: 20160122
